FAERS Safety Report 9204162 (Version 1)
Quarter: 2013Q2

REPORT INFORMATION
  Report Type: Spontaneous
  Country: US (occurrence: US)
  Receive Date: 20130402
  Receipt Date: 20130402
  Transmission Date: 20140414
  Serious: Yes (Hospitalization, Other)
  Sender: FDA-Public Use
  Company Number: US-PFIZER INC-2013103054

PATIENT
  Sex: Female

DRUGS (1)
  1. NEURONTIN [Suspect]
     Indication: NEUROPATHY PERIPHERAL
     Dosage: 2000 MG, 1X/DAY (5 CAPSULE OF 400MG/DAY)

REACTIONS (3)
  - Pain [Unknown]
  - Dementia [Not Recovered/Not Resolved]
  - Malaise [Unknown]
